FAERS Safety Report 9559416 (Version 2)
Quarter: 2014Q1

REPORT INFORMATION
  Report Type: Spontaneous
  Country: US (occurrence: None)
  Receive Date: 20130906
  Receipt Date: 20131205
  Transmission Date: 20141002
  Serious: No
  Sender: FDA-Public Use
  Company Number: 163-POMAL-13071079

PATIENT
  Age: 61 Year
  Sex: Male

DRUGS (10)
  1. POMALYST [Suspect]
     Indication: PLASMA CELL MYELOMA
     Dosage: 4 MG, 21 IN 21 D
     Route: 048
     Dates: start: 20130528
  2. ASPIRIN (ACETYLSALICYLIC ACID) [Concomitant]
  3. PLAVIX (CLOPIDOGREL SULFATE) [Concomitant]
  4. PRAVASTATIN [Concomitant]
  5. DEXAMETHASONE [Concomitant]
  6. WARFARIN [Concomitant]
  7. VITAMIN (VITAMINS NOS) [Concomitant]
  8. FISH OIL [Concomitant]
  9. MAGNESIUM [Concomitant]
  10. STEROID (CORTICOSTEROID NOS) [Concomitant]

REACTIONS (7)
  - Muscle atrophy [None]
  - Cushingoid [None]
  - Weight decreased [None]
  - Weight increased [None]
  - Asthenia [None]
  - Constipation [None]
  - Fatigue [None]
